FAERS Safety Report 10474134 (Version 1)
Quarter: 2014Q3

REPORT INFORMATION
  Report Type: Spontaneous
  Country: US (occurrence: US)
  Receive Date: 20140924
  Receipt Date: 20140924
  Transmission Date: 20150326
  Serious: No
  Sender: FDA-Public Use
  Company Number: US-ASTRAZENECA-2014SE00716

PATIENT
  Age: 89 Year
  Sex: Female

DRUGS (14)
  1. ZESTRIL [Suspect]
     Active Substance: LISINOPRIL
     Indication: BLOOD PRESSURE ABNORMAL
     Route: 048
     Dates: start: 2010
  2. ALLOPURINOL. [Concomitant]
     Active Substance: ALLOPURINOL
     Indication: GOUT
     Route: 048
  3. SALSATE [Concomitant]
     Indication: ARTHRITIS
     Dosage: 750 MG 2 TABS DAILY
     Route: 048
  4. EST ESTROGENMTEST HS [Concomitant]
     Dosage: 1 TAB DAILY
     Route: 048
  5. ZESTRIL [Suspect]
     Active Substance: LISINOPRIL
     Indication: BLOOD PRESSURE ABNORMAL
     Dosage: GENERIC, 10 MG AT NIGHT
     Route: 048
     Dates: start: 2003, end: 2010
  6. ZESTRIL [Suspect]
     Active Substance: LISINOPRIL
     Indication: BLOOD PRESSURE ABNORMAL
     Route: 048
     Dates: start: 2010
  7. GABAPENTIN. [Concomitant]
     Active Substance: GABAPENTIN
     Indication: PAIN IN EXTREMITY
     Route: 048
  8. DIFTIAZER [Concomitant]
     Indication: BLOOD PRESSURE ABNORMAL
     Route: 048
  9. LEVOTHYROXINE [Concomitant]
     Active Substance: LEVOTHYROXINE
     Indication: THYROID DISORDER
     Dosage: 75 MCG DAILY
     Route: 048
  10. CHLOROTHIAZIDE. [Concomitant]
     Active Substance: CHLOROTHIAZIDE
     Indication: DIURETIC THERAPY
     Route: 048
  11. NIGHT TIME EYE OINTMENT [Concomitant]
     Indication: DRY EYE
     Dosage: HS
     Route: 050
  12. PRAVASTATIN [Concomitant]
     Active Substance: PRAVASTATIN\PRAVASTATIN SODIUM
     Indication: BLOOD CHOLESTEROL ABNORMAL
     Route: 048
  13. RESTASIS [Concomitant]
     Active Substance: CYCLOSPORINE
     Indication: DRY EYE
     Dosage: 1 DROP BID
     Route: 050
  14. ZESTRIL [Suspect]
     Active Substance: LISINOPRIL
     Indication: BLOOD PRESSURE ABNORMAL
     Dosage: GENERIC, 20 MG, EVERY MORNING
     Route: 048
     Dates: start: 2003, end: 2010

REACTIONS (3)
  - Heart rate increased [Unknown]
  - Hypothyroidism [Unknown]
  - Drug intolerance [Unknown]

NARRATIVE: CASE EVENT DATE: 2010
